FAERS Safety Report 21982919 (Version 1)
Quarter: 2023Q1

REPORT INFORMATION
  Report Type: Spontaneous
  Country: IT (occurrence: IT)
  Receive Date: 20230213
  Receipt Date: 20230213
  Transmission Date: 20230418
  Serious: Yes (Other)
  Sender: FDA-Public Use
  Company Number: IT-SUN PHARMACEUTICAL INDUSTRIES LTD-2023RR-377766

PATIENT
  Age: 8 Year
  Sex: Male

DRUGS (4)
  1. CETIRIZINE [Suspect]
     Active Substance: CETIRIZINE HYDROCHLORIDE
     Indication: Systemic mastocytosis
     Dosage: 10 MILLIGRAM UP TO 2 TIMES DAILY
     Route: 048
  2. PREDNISOLONE [Suspect]
     Active Substance: PREDNISOLONE
     Indication: Systemic mastocytosis
     Dosage: 1-2MG/KG.DAY FOR AVERAGE 2-5 CONSECUTIVE DAYS
     Route: 048
  3. KETOTIFEN [Suspect]
     Active Substance: KETOTIFEN
     Indication: Systemic mastocytosis
     Dosage: 1 MILLIGRAM, BID
     Route: 048
  4. CROMOLYN SODIUM [Concomitant]
     Active Substance: CROMOLYN SODIUM
     Indication: Systemic mastocytosis
     Dosage: 250 MILLIGRAM, 4 TIMES DAILY
     Route: 048

REACTIONS (2)
  - Drug ineffective [Unknown]
  - Adverse drug reaction [Unknown]
